FAERS Safety Report 13490725 (Version 1)
Quarter: 2017Q2

REPORT INFORMATION
  Report Type: Report from Study
  Country: US (occurrence: US)
  Receive Date: 20170427
  Receipt Date: 20170427
  Transmission Date: 20170830
  Serious: Yes (Other)
  Sender: FDA-Public Use
  Company Number: US-AMGEN-USASL2017059652

PATIENT
  Age: 65 Year
  Sex: Female

DRUGS (1)
  1. NPLATE [Suspect]
     Active Substance: ROMIPLOSTIM
     Indication: IMMUNE THROMBOCYTOPENIC PURPURA
     Dosage: UNK
     Route: 065

REACTIONS (6)
  - Off label use [Unknown]
  - Drug effect delayed [Unknown]
  - Colonoscopy [Unknown]
  - Platelet count abnormal [Unknown]
  - Unevaluable event [Unknown]
  - Tooth extraction [Unknown]

NARRATIVE: CASE EVENT DATE: 2016
